FAERS Safety Report 8032187-6 (Version None)
Quarter: 2012Q1

REPORT INFORMATION
  Report Type: 
  Country: None (occurrence: None)
  Receive Date: 20120110
  Receipt Date: 20120104
  Transmission Date: 20120608
  Serious: Yes (Hospitalization)
  Sender: FDA-Public Use
  Company Number: US-BIOGENIDEC-2011BI026069

PATIENT
  Age: 36 Year
  Sex: Male

DRUGS (7)
  1. TYSABRI [Suspect]
     Indication: MULTIPLE SCLEROSIS
     Route: 042
     Dates: start: 20080815
  2. ONGLYZA [Concomitant]
     Indication: DIABETES MELLITUS
     Route: 048
  3. PAXIL [Concomitant]
     Indication: DEPRESSION
     Route: 048
  4. PROCARDIA XL [Concomitant]
     Indication: HYPERTENSION
     Route: 048
  5. REQUIP XR [Concomitant]
     Indication: RESTLESS LEGS SYNDROME
     Route: 048
  6. LANTUS [Concomitant]
     Indication: DIABETES MELLITUS
     Route: 058
  7. GLUMETZA [Concomitant]
     Indication: DIABETES MELLITUS
     Route: 048

REACTIONS (1)
  - URINARY RETENTION [None]
